FAERS Safety Report 7586558-2 (Version None)
Quarter: 2011Q3

REPORT INFORMATION
  Report Type: 
  Country: None (occurrence: None)
  Receive Date: 20110701
  Receipt Date: 20110616
  Transmission Date: 20111222
  Serious: No
  Sender: FDA-Public Use
  Company Number: US-B.I. PHARMACEUTICALS,INC./RIDGEFIELD-2011-BP-12531BP

PATIENT
  Sex: Female

DRUGS (11)
  1. CARBIDOPA AND LEVODOPA [Concomitant]
  2. OMEPRAZOLE [Concomitant]
     Indication: GASTROOESOPHAGEAL REFLUX DISEASE
     Dates: start: 20110101
  3. MELATONIN [Concomitant]
  4. FLAGROCORTINE [Concomitant]
  5. LEVOTHYROXINE SODIUM [Concomitant]
  6. DRISDOL [Concomitant]
  7. MIRAPEX [Suspect]
     Indication: PARKINSON'S DISEASE
     Dosage: 1.5 MG
     Route: 048
     Dates: start: 20110504, end: 20110505
  8. CARB/LEVO ER [Concomitant]
  9. CARB/LEVO ER [Concomitant]
  10. PRAMIPEROR [Concomitant]
  11. COMTAN 4 [Concomitant]

REACTIONS (3)
  - TREMOR [None]
  - CARDIAC FLUTTER [None]
  - CHILLS [None]
